FAERS Safety Report 23239038 (Version 1)
Quarter: 2023Q4

REPORT INFORMATION
  Report Type: Spontaneous
  Country: US (occurrence: US)
  Receive Date: 20231129
  Receipt Date: 20231129
  Transmission Date: 20240109
  Serious: No
  Sender: FDA-Public Use
  Company Number: US-PADAGIS-2023PAD01668

PATIENT

DRUGS (14)
  1. ZOLMITRIPTAN [Suspect]
     Active Substance: ZOLMITRIPTAN
     Indication: Generalised anxiety disorder
     Dosage: UNK
     Route: 065
  2. ZOLMITRIPTAN [Suspect]
     Active Substance: ZOLMITRIPTAN
     Indication: Migraine
  3. SUMATRIPTAN [Suspect]
     Active Substance: SUMATRIPTAN
     Indication: Generalised anxiety disorder
     Dosage: UNK
     Route: 065
  4. SUMATRIPTAN [Suspect]
     Active Substance: SUMATRIPTAN
     Indication: Migraine
  5. SERTRALINE [Suspect]
     Active Substance: SERTRALINE HYDROCHLORIDE
     Indication: Generalised anxiety disorder
     Dosage: UNK
     Route: 065
  6. SERTRALINE [Suspect]
     Active Substance: SERTRALINE HYDROCHLORIDE
     Indication: Migraine
  7. VENLAFAXINE [Suspect]
     Active Substance: VENLAFAXINE HYDROCHLORIDE
     Indication: Generalised anxiety disorder
     Dosage: UNK
     Route: 065
  8. VENLAFAXINE [Suspect]
     Active Substance: VENLAFAXINE HYDROCHLORIDE
     Indication: Migraine
  9. QUETIAPINE [Suspect]
     Active Substance: QUETIAPINE
     Indication: Generalised anxiety disorder
     Dosage: UNK
     Route: 065
  10. QUETIAPINE [Suspect]
     Active Substance: QUETIAPINE
     Indication: Migraine
     Dosage: 100 MG
     Route: 065
  11. LAMOTRIGINE [Suspect]
     Active Substance: LAMOTRIGINE
     Indication: Generalised anxiety disorder
     Dosage: UNK
     Route: 065
  12. LAMOTRIGINE [Suspect]
     Active Substance: LAMOTRIGINE
     Indication: Migraine
  13. RIZATRIPTAN [Suspect]
     Active Substance: RIZATRIPTAN
     Indication: Generalised anxiety disorder
     Dosage: UNK
     Route: 065
  14. RIZATRIPTAN [Suspect]
     Active Substance: RIZATRIPTAN
     Indication: Migraine

REACTIONS (2)
  - Treatment failure [Unknown]
  - Product use in unapproved indication [Unknown]
